FAERS Safety Report 5002568-3 (Version None)
Quarter: 2006Q2

REPORT INFORMATION
  Report Type: 
  Country: None (occurrence: None)
  Receive Date: 20060515
  Receipt Date: 20060224
  Transmission Date: 20061013
  Serious: Yes (Hospitalization)
  Sender: FDA-Public Use
  Company Number: US-MERCK-0602USA05763

PATIENT
  Age: 68 Year
  Sex: Female
  Weight: 64 kg

DRUGS (1)
  1. VIOXX [Suspect]
     Indication: ARTHRALGIA
     Route: 065
     Dates: start: 20010424, end: 20041001

REACTIONS (5)
  - BREAST DISORDER [None]
  - CHEST PAIN [None]
  - COLONIC STENOSIS [None]
  - MYOCARDIAL INFARCTION [None]
  - RENAL DISORDER [None]
